FAERS Safety Report 10010615 (Version 1)
Quarter: 2014Q1

REPORT INFORMATION
  Report Type: Spontaneous
  Country: US (occurrence: None)
  Receive Date: 20140312
  Receipt Date: 20140312
  Transmission Date: 20141002
  Serious: Yes (Hospitalization)
  Sender: FDA-Public Use
  Company Number: None

PATIENT
  Age: 60 Year
  Sex: Male

DRUGS (1)
  1. ZYTIGA 250 MG JANSSEN BIOTECH [Suspect]
     Dosage: 250 MG TAKE 4 DAILY
     Route: 048
     Dates: start: 20140213

REACTIONS (1)
  - Pulmonary oedema [None]
